FAERS Safety Report 6389527-3 (Version None)
Quarter: 2009Q4

REPORT INFORMATION
  Report Type: 
  Country: None (occurrence: None)
  Receive Date: 20091006
  Receipt Date: 20090924
  Transmission Date: 20100525
  Serious: Yes (Other)
  Sender: FDA-Public Use
  Company Number: US-ASTRAZENECA-2009SE15165

PATIENT
  Age: 57 Year
  Sex: Male
  Weight: 81.6 kg

DRUGS (6)
  1. CRESTOR [Suspect]
     Indication: BLOOD CHOLESTEROL INCREASED
     Route: 048
     Dates: start: 20040101
  2. QUINARETIC [Concomitant]
     Indication: HYPERTENSION
  3. ALDACTONE [Concomitant]
     Indication: HYPERTENSION
  4. COREG [Concomitant]
  5. ASPIRIN [Concomitant]
     Route: 048
  6. FISH OIL [Concomitant]

REACTIONS (1)
  - MYOCARDIAL INFARCTION [None]
